FAERS Safety Report 11275751 (Version 1)
Quarter: 2015Q3

REPORT INFORMATION
  Report Type: Spontaneous
  Country: RU (occurrence: RU)
  Receive Date: 20150716
  Receipt Date: 20150716
  Transmission Date: 20151125
  Serious: Yes (Hospitalization, Other)
  Sender: FDA-Public Use
  Company Number: RU-JNJFOC-20150710149

PATIENT
  Sex: Male
  Weight: 92 kg

DRUGS (2)
  1. XARELTO [Suspect]
     Active Substance: RIVAROXABAN
     Indication: CEREBROVASCULAR ACCIDENT PROPHYLAXIS
     Route: 048
     Dates: start: 201406, end: 20150625
  2. XARELTO [Suspect]
     Active Substance: RIVAROXABAN
     Indication: ATRIAL FIBRILLATION
     Route: 048
     Dates: start: 201406, end: 20150625

REACTIONS (3)
  - Atrial fibrillation [Unknown]
  - Suspected counterfeit product [Unknown]
  - Atrial thrombosis [Not Recovered/Not Resolved]

NARRATIVE: CASE EVENT DATE: 20150625
